FAERS Safety Report 7255731-5 (Version None)
Quarter: 2011Q1

REPORT INFORMATION
  Report Type: 
  Country: None (occurrence: None)
  Receive Date: 20110129
  Receipt Date: 20100824
  Transmission Date: 20110831
  Serious: No
  Sender: FDA-Public Use
  Company Number: US-ABBOTT-10P-163-0667145-00

PATIENT
  Sex: Female
  Weight: 81.266 kg

DRUGS (1)
  1. HUMIRA [Suspect]
     Indication: POLYARTHRITIS
     Dates: start: 20100817

REACTIONS (3)
  - PARAESTHESIA [None]
  - ALOPECIA AREATA [None]
  - HYPOAESTHESIA FACIAL [None]
